FAERS Safety Report 20315058 (Version 1)
Quarter: 2022Q1

REPORT INFORMATION
  Report Type: Spontaneous
  Country: US (occurrence: None)
  Receive Date: 20220110
  Receipt Date: 20220110
  Transmission Date: 20220423
  Serious: No
  Sender: FDA-Public Use
  Company Number: US-ROCHE-2746963

PATIENT
  Age: 72 Year
  Sex: Male

DRUGS (5)
  1. RITUXAN [Suspect]
     Active Substance: RITUXIMAB
     Indication: Follicular lymphoma
     Route: 065
     Dates: start: 201912
  2. CYCLOPHOSPHAMIDE [Concomitant]
     Active Substance: CYCLOPHOSPHAMIDE
     Dates: start: 201912
  3. DOXORUBICIN [Concomitant]
     Active Substance: DOXORUBICIN
     Dates: start: 201912
  4. VINCRISTINE [Concomitant]
     Active Substance: VINCRISTINE
     Dates: start: 201912
  5. PREDNISONE [Concomitant]
     Active Substance: PREDNISONE
     Dates: start: 201912

REACTIONS (2)
  - Pyrexia [Unknown]
  - Myalgia [Unknown]
